FAERS Safety Report 10435376 (Version 1)
Quarter: 2014Q3

REPORT INFORMATION
  Report Type: Report from Study
  Country: PK (occurrence: PK)
  Receive Date: 20140908
  Receipt Date: 20140908
  Transmission Date: 20150326
  Serious: Yes (Death)
  Sender: FDA-Public Use
  Company Number: PK-ROCHE-1458962

PATIENT
  Age: 55 Year
  Sex: Male

DRUGS (1)
  1. MIRCERA [Suspect]
     Active Substance: PEGZEREPOETIN ALFA
     Indication: NEPHROGENIC ANAEMIA
     Dosage: 50 MCG / 0.3 ML
     Route: 042
     Dates: start: 20140313

REACTIONS (1)
  - Death [Fatal]
